FAERS Safety Report 22191083 (Version 1)
Quarter: 2023Q2

REPORT INFORMATION
  Report Type: Spontaneous
  Country: US (occurrence: None)
  Receive Date: 20230406
  Receipt Date: 20230406
  Transmission Date: 20230722
  Serious: No
  Sender: FDA-Public Use
  Company Number: None

PATIENT
  Age: 78 Year
  Sex: Female
  Weight: 39.1 kg

DRUGS (11)
  1. LENALIDOMIDE [Suspect]
     Active Substance: LENALIDOMIDE
     Indication: Diffuse large B-cell lymphoma
     Dosage: FREQUENCY : EVERY OTHER DAY;?
     Route: 048
  2. Aspirin [Concomitant]
  3. ATENOLOL [Concomitant]
     Active Substance: ATENOLOL
  4. LANTUS [Concomitant]
     Active Substance: INSULIN GLARGINE
  5. LASIX [Concomitant]
     Active Substance: FUROSEMIDE
  6. LINAGLIPTIN [Concomitant]
  7. NORVASC [Concomitant]
     Active Substance: AMLODIPINE BESYLATE
  8. POTASSIUM CHLORIDE [Concomitant]
     Active Substance: POTASSIUM CHLORIDE
  9. PRAVASTATIN SODIUM [Concomitant]
  10. PREDNISONE [Concomitant]
     Active Substance: PREDNISONE
  11. ZOFRAN [Concomitant]
     Active Substance: ONDANSETRON HYDROCHLORIDE

REACTIONS (1)
  - Toxicity to various agents [None]
